FAERS Safety Report 25525409 (Version 1)
Quarter: 2025Q3

REPORT INFORMATION
  Report Type: Spontaneous
  Country: US (occurrence: US)
  Receive Date: 20250707
  Receipt Date: 20250707
  Transmission Date: 20251021
  Serious: Yes (Life-Threatening, Hospitalization)
  Sender: MYLAN
  Company Number: US-MYLANLABS-2025M1055415

PATIENT
  Age: 27 Year
  Sex: Male

DRUGS (4)
  1. ARGATROBAN [Suspect]
     Active Substance: ARGATROBAN
     Indication: Pulmonary embolism
  2. ARGATROBAN [Suspect]
     Active Substance: ARGATROBAN
     Route: 065
  3. ARGATROBAN [Suspect]
     Active Substance: ARGATROBAN
     Route: 065
  4. ARGATROBAN [Suspect]
     Active Substance: ARGATROBAN

REACTIONS (1)
  - Drug ineffective [Unknown]
